FAERS Safety Report 5639251-7 (Version None)
Quarter: 2008Q1

REPORT INFORMATION
  Report Type: 
  Country: None (occurrence: None)
  Receive Date: 20080226
  Receipt Date: 20080220
  Transmission Date: 20080703
  Serious: Yes (Hospitalization)
  Sender: FDA-Public Use
  Company Number: US-BOEHRINGER INGELHEIM GMBH, GERMANY-2008-BP-01752BP

PATIENT
  Age: 65 Year
  Sex: Female

DRUGS (2)
  1. ATROVENT HFA [Suspect]
     Route: 055
  2. OXYGEN [Concomitant]

REACTIONS (1)
  - TACHYCARDIA [None]
